FAERS Safety Report 5401095-9 (Version None)
Quarter: 2007Q3

REPORT INFORMATION
  Report Type: 
  Country: None (occurrence: None)
  Receive Date: 20070726
  Receipt Date: 20070718
  Transmission Date: 20080115
  Serious: Yes (Hospitalization)
  Sender: FDA-Public Use
  Company Number: 2007-03407

PATIENT
  Age: 24 Year
  Sex: Female

DRUGS (1)
  1. VERAPAMIL [Suspect]
     Indication: VASOSPASM
     Dosage: 15 MG, INTRA-ARTERIAL
     Route: 013

REACTIONS (1)
  - PARTIAL SEIZURES [None]
